FAERS Safety Report 4394859-4 (Version None)
Quarter: 2004Q3

REPORT INFORMATION
  Report Type: 
  Country: None (occurrence: None)
  Receive Date: 20040707
  Receipt Date: 20040624
  Transmission Date: 20050211
  Serious: Yes (Hospitalization)
  Sender: FDA-Public Use
  Company Number: K200400925

PATIENT
  Age: 70 Year
  Sex: Male

DRUGS (9)
  1. ALTACE [Suspect]
     Dosage: 1 U, QD, ORAL
     Route: 048
     Dates: end: 20040514
  2. ALDACTONE [Suspect]
     Dosage: 2 U, QD, ORAL
     Route: 048
     Dates: end: 20040514
  3. BURINEX (BUMETANIDE) 1U [Suspect]
     Dosage: 1 U, QD, ORAL
     Route: 048
     Dates: end: 20040514
  4. AMARYL [Concomitant]
  5. METFORMIN HCL [Concomitant]
  6. BISOPROLOL FUMARATE [Concomitant]
  7. DUROGESIC (FENTANYL) [Concomitant]
  8. STILNOX (ZOLPIDEM) [Concomitant]
  9. FERROUS FUMARATE [Concomitant]

REACTIONS (3)
  - DEHYDRATION [None]
  - HYPERKALAEMIA [None]
  - RENAL FAILURE ACUTE [None]
